FAERS Safety Report 12650609 (Version 1)
Quarter: 2016Q3

REPORT INFORMATION
  Report Type: Spontaneous
  Country: US (occurrence: US)
  Receive Date: 20160815
  Receipt Date: 20160815
  Transmission Date: 20161109
  Serious: No
  Sender: FDA-Public Use
  Company Number: US-TEVA-682890USA

PATIENT
  Age: 52 Year
  Sex: Female

DRUGS (10)
  1. COPAXONE [Suspect]
     Active Substance: GLATIRAMER ACETATE
     Indication: MULTIPLE SCLEROSIS
     Route: 058
  2. CLONAZEPAM. [Concomitant]
     Active Substance: CLONAZEPAM
  3. CYMBALTA [Concomitant]
     Active Substance: DULOXETINE HYDROCHLORIDE
  4. BUPROPN [Concomitant]
  5. VITAMIN D [Concomitant]
     Active Substance: CHOLECALCIFEROL
  6. BACLOFEN. [Concomitant]
     Active Substance: BACLOFEN
  7. MODAFINIL. [Concomitant]
     Active Substance: MODAFINIL
  8. AMPYRA [Concomitant]
     Active Substance: DALFAMPRIDINE
  9. GLUCOSAMINE [Concomitant]
     Active Substance: GLUCOSAMINE
  10. VESICARE [Concomitant]
     Active Substance: SOLIFENACIN SUCCINATE

REACTIONS (3)
  - Fall [Unknown]
  - Eye contusion [Unknown]
  - Walking aid user [Unknown]

NARRATIVE: CASE EVENT DATE: 201607
